FAERS Safety Report 4859627-5 (Version None)
Quarter: 2005Q4

REPORT INFORMATION
  Report Type: 
  Country: None (occurrence: None)
  Receive Date: 20051219
  Receipt Date: 20050630
  Transmission Date: 20060501
  Serious: No
  Sender: FDA-Public Use
  Company Number: US-GLAXOSMITHKLINE-A0564679A

PATIENT
  Age: 61 Year
  Sex: Female

DRUGS (3)
  1. NICODERM CQ [Suspect]
  2. NICORETTE (MINT) [Suspect]
  3. COMMIT [Suspect]

REACTIONS (5)
  - APPLICATION SITE DERMATITIS [None]
  - APPLICATION SITE ERYTHEMA [None]
  - APPLICATION SITE PRURITUS [None]
  - NAUSEA [None]
  - PAIN IN JAW [None]
